FAERS Safety Report 4311784-5 (Version None)
Quarter: 2004Q1

REPORT INFORMATION
  Report Type: 
  Country: None (occurrence: None)
  Receive Date: 20040302
  Receipt Date: 20031105
  Transmission Date: 20041129
  Serious: No
  Sender: FDA-Public Use
  Company Number: 200328134BWH

PATIENT
  Age: 71 Year
  Sex: Male

DRUGS (8)
  1. LEVITRA [Suspect]
     Indication: ERECTILE DYSFUNCTION
     Dosage: 10 MG, ONCE, ORAL; 20 MG, ONCE, ORAL
     Route: 048
     Dates: start: 20031031
  2. LEVITRA [Suspect]
     Indication: ERECTILE DYSFUNCTION
     Dosage: 10 MG, ONCE, ORAL; 20 MG, ONCE, ORAL
     Route: 048
     Dates: start: 20031105
  3. LIPITOR [Concomitant]
  4. COREG [Concomitant]
  5. LASIX [Concomitant]
  6. ALDACTONE [Concomitant]
  7. COZAAR [Concomitant]
  8. STARLIX [Concomitant]

REACTIONS (1)
  - ERECTILE DYSFUNCTION [None]
